FAERS Safety Report 12610831 (Version 4)
Quarter: 2016Q4

REPORT INFORMATION
  Report Type: Spontaneous
  Country: US (occurrence: US)
  Receive Date: 20160801
  Receipt Date: 20161102
  Transmission Date: 20170207
  Serious: Yes (Hospitalization, Other)
  Sender: FDA-Public Use
  Company Number: US-PFIZER INC-2016327369

PATIENT
  Age: 75 Year
  Sex: Female
  Weight: 86 kg

DRUGS (2)
  1. IBRANCE [Suspect]
     Active Substance: PALBOCICLIB
     Indication: BREAST CANCER METASTATIC
     Dosage: 125 MG, CYCLIC (DAYS 1-21 EVERY 28 DAYS)
     Route: 048
     Dates: start: 20160622
  2. IBRANCE [Suspect]
     Active Substance: PALBOCICLIB
     Dosage: 125 MG, CYCLIC (DAYS 1-21 EVERY 28 DAYS)
     Route: 048
     Dates: start: 20160622

REACTIONS (13)
  - Constipation [Unknown]
  - Thrombosis [Unknown]
  - Fatigue [Unknown]
  - Peripheral swelling [Unknown]
  - Muscle spasms [Unknown]
  - Dehydration [Unknown]
  - Decreased appetite [Unknown]
  - Ear pain [Unknown]
  - Headache [Unknown]
  - Oral pain [Unknown]
  - Lymphoedema [Unknown]
  - Gastrooesophageal reflux disease [Unknown]
  - Neck pain [Recovered/Resolved]

NARRATIVE: CASE EVENT DATE: 20160709
